FAERS Safety Report 8235062-7 (Version None)
Quarter: 2012Q1

REPORT INFORMATION
  Report Type: 
  Country: None (occurrence: None)
  Receive Date: 20120326
  Receipt Date: 20120313
  Transmission Date: 20120608
  Serious: Yes (Hospitalization)
  Sender: FDA-Public Use
  Company Number: FR-GLAXOSMITHKLINE-B0788004A

PATIENT
  Sex: Male

DRUGS (3)
  1. PREVISCAN [Concomitant]
     Indication: THROMBOPHLEBITIS SUPERFICIAL
  2. INNOHEP [Concomitant]
     Dates: start: 20111101
  3. ARIXTRA [Suspect]
     Indication: THROMBOPHLEBITIS SUPERFICIAL
     Dosage: 2.5MG PER DAY
     Route: 058
     Dates: start: 20111128, end: 20111202

REACTIONS (2)
  - ANAEMIA [None]
  - EPISTAXIS [None]
